FAERS Safety Report 5103964-6 (Version None)
Quarter: 2006Q3

REPORT INFORMATION
  Report Type: 
  Country: None (occurrence: None)
  Receive Date: 20060907
  Receipt Date: 20060825
  Transmission Date: 20061208
  Serious: Yes (Hospitalization)
  Sender: FDA-Public Use
  Company Number: 200610222

PATIENT
  Age: 5 Year
  Sex: Male
  Weight: 18 kg

DRUGS (2)
  1. HAEMATE HS (FACTOR VIII (ANTIHAEMOPHILIC FACTOR)) (ZLB BEHRING) [Suspect]
     Indication: HAEMARTHROSIS
     Dosage: 1000 IU BID IV
     Route: 042
     Dates: start: 20060425
  2. HAEMATE HS (FACTOR VIII (ANTIHAEMOPHILIC FACTOR)) (ZLB BEHRING) [Suspect]
     Indication: VON WILLEBRAND'S DISEASE
     Dosage: 1000 IU BID IV
     Route: 042
     Dates: start: 20060425

REACTIONS (1)
  - FIBRIN D DIMER INCREASED [None]
